FAERS Safety Report 23048619 (Version 1)
Quarter: 2023Q4

REPORT INFORMATION
  Report Type: Spontaneous
  Country: DE (occurrence: DE)
  Receive Date: 20231010
  Receipt Date: 20231010
  Transmission Date: 20240110
  Serious: Yes (Hospitalization)
  Sender: FDA-Public Use
  Company Number: None

PATIENT
  Sex: Male

DRUGS (24)
  1. BRIVARACETAM [Suspect]
     Active Substance: BRIVARACETAM
     Indication: Product used for unknown indication
     Dosage: 100 MILLIGRAM
     Route: 048
     Dates: end: 20230919
  2. BRIVARACETAM [Suspect]
     Active Substance: BRIVARACETAM
     Dosage: 400 MILLIGRAM
     Route: 048
     Dates: start: 20230920, end: 20230920
  3. AMLODIPINE [Suspect]
     Active Substance: AMLODIPINE BESYLATE
     Indication: Product used for unknown indication
     Dosage: 5 MILLIGRAM
     Route: 048
     Dates: end: 20230919
  4. AMLODIPINE [Suspect]
     Active Substance: AMLODIPINE BESYLATE
     Dosage: 20 MILLIGRAM
     Route: 048
     Dates: start: 20230920, end: 20230920
  5. PANTOPRAZOLE [Suspect]
     Active Substance: PANTOPRAZOLE
     Indication: Product used for unknown indication
     Dosage: DOSE AND FREQUENCY UNKNOWN
     Route: 048
     Dates: end: 20230919
  6. PANTOPRAZOLE [Suspect]
     Active Substance: PANTOPRAZOLE
     Dosage: DOSE AND FREQUENCY UNKNOWN
     Route: 048
     Dates: start: 20230920, end: 20230920
  7. FLUTICASONE [Suspect]
     Active Substance: FLUTICASONE
     Indication: Product used for unknown indication
     Dosage: DOSE AND FREQUENCY UNKNOWN
     Dates: end: 20230919
  8. FLUTICASONE [Suspect]
     Active Substance: FLUTICASONE
     Dosage: DOSE AND FREQUENCY UNKNOWN
     Dates: start: 20230920, end: 20230920
  9. LAMOTRIGINE [Suspect]
     Active Substance: LAMOTRIGINE
     Indication: Product used for unknown indication
     Dosage: 200 MILLIGRAM
     Route: 048
     Dates: end: 20230919
  10. LAMOTRIGINE [Suspect]
     Active Substance: LAMOTRIGINE
     Dosage: 800 MILLIGRAM
     Route: 048
     Dates: start: 20230920, end: 20230920
  11. BISOPROLOL [Suspect]
     Active Substance: BISOPROLOL\BISOPROLOL FUMARATE
     Indication: Product used for unknown indication
     Dosage: 2.5 MILLIGRAM
     Route: 048
     Dates: end: 20230919
  12. BISOPROLOL [Suspect]
     Active Substance: BISOPROLOL\BISOPROLOL FUMARATE
     Dosage: 10 MILLIGRAM
     Route: 048
     Dates: start: 20230920, end: 20230920
  13. FYCOMPA [Suspect]
     Active Substance: PERAMPANEL
     Indication: Product used for unknown indication
     Dosage: 10 MILLIGRAM
     Route: 048
     Dates: end: 20230919
  14. FYCOMPA [Suspect]
     Active Substance: PERAMPANEL
     Dosage: 40 MILLIGRAM
     Route: 048
     Dates: start: 20230920, end: 20230920
  15. SALMETEROL [Suspect]
     Active Substance: SALMETEROL
     Indication: Product used for unknown indication
     Dosage: DOSE AND FREQUENCY UNKNOWN
     Dates: end: 20230919
  16. SALMETEROL [Suspect]
     Active Substance: SALMETEROL
     Dosage: DOSE AND FREQUENCY UNKNOWN
     Dates: start: 20230920, end: 20230920
  17. RAMIPRIL [Suspect]
     Active Substance: RAMIPRIL
     Indication: Product used for unknown indication
     Dosage: 5 MILLIGRAM
     Route: 048
     Dates: end: 20230919
  18. RAMIPRIL [Suspect]
     Active Substance: RAMIPRIL
     Dosage: 20 MILLIGRAM
     Route: 048
     Dates: start: 20230920, end: 20230920
  19. MOXONIDINE [Suspect]
     Active Substance: MOXONIDINE
     Indication: Product used for unknown indication
     Dosage: 0.2 MILLIGRAM
     Route: 048
     Dates: end: 20230919
  20. MOXONIDINE [Suspect]
     Active Substance: MOXONIDINE
     Dosage: 0.8 MILLIGRAM
     Route: 048
     Dates: start: 20230920, end: 20230920
  21. LORAZEPAM [Suspect]
     Active Substance: LORAZEPAM
     Indication: Product used for unknown indication
     Dosage: 1 MILLIGRAM
     Route: 048
     Dates: end: 20230919
  22. LORAZEPAM [Suspect]
     Active Substance: LORAZEPAM
     Dosage: 4 MILLIGRAM
     Route: 048
     Dates: start: 20230920, end: 20230920
  23. ASPIRIN [Suspect]
     Active Substance: ASPIRIN
     Indication: Product used for unknown indication
     Dosage: 100 MILLIGRAM
     Route: 048
     Dates: end: 20230919
  24. ASPIRIN [Suspect]
     Active Substance: ASPIRIN
     Dosage: 400 MILLIGRAM
     Route: 048
     Dates: start: 20230920, end: 20230920

REACTIONS (4)
  - Vomiting [Unknown]
  - Disorientation [Unknown]
  - Dysarthria [Unknown]
  - Accidental overdose [Unknown]

NARRATIVE: CASE EVENT DATE: 20230920
